FAERS Safety Report 25021944 (Version 6)
Quarter: 2025Q2

REPORT INFORMATION
  Report Type: Report from Study
  Country: BR (occurrence: BR)
  Receive Date: 20250228
  Receipt Date: 20250626
  Transmission Date: 20250716
  Serious: Yes (Other)
  Sender: JOHNSON AND JOHNSON
  Company Number: BR-JNJFOC-20250153768

PATIENT
  Age: 58 Year
  Sex: Female
  Weight: 89 kg

DRUGS (9)
  1. TALVEY [Suspect]
     Active Substance: TALQUETAMAB-TGVS
     Indication: Plasma cell myeloma
     Dosage: LAST APPLICATION DATE: 30/APR/2025
     Route: 058
     Dates: start: 20241202
  2. TALVEY [Suspect]
     Active Substance: TALQUETAMAB-TGVS
     Route: 058
  3. ACYCLOVIR [Concomitant]
     Active Substance: ACYCLOVIR
     Indication: Herpes virus infection
  4. BACTRIM [Concomitant]
     Active Substance: SULFAMETHOXAZOLE\TRIMETHOPRIM
     Indication: Lung disorder
  5. OMEPRAZOLE [Concomitant]
     Active Substance: OMEPRAZOLE
     Indication: Gastrointestinal disorder
  6. FERITIN [FERRIC HYDROXIDE POLYMALTOSE COMPLEX] [Concomitant]
     Indication: Alopecia
  7. PREGABALIN [Concomitant]
     Active Substance: PREGABALIN
     Indication: Back pain
  8. IMECAP HAIR [Concomitant]
     Indication: Alopecia
  9. PANTOGAR [CALCIUM PANTOTHENATE;CYSTINE] [Concomitant]
     Indication: Alopecia

REACTIONS (22)
  - Neuropathy peripheral [Recovering/Resolving]
  - Onychoclasis [Recovering/Resolving]
  - Pain [Recovered/Resolved]
  - Alopecia [Recovering/Resolving]
  - Onychomadesis [Recovered/Resolved]
  - Arthralgia [Unknown]
  - Onychoclasis [Not Recovered/Not Resolved]
  - Application site bruise [Unknown]
  - Application site pruritus [Unknown]
  - Application site erythema [Unknown]
  - Application site pain [Unknown]
  - Diffuse alopecia [Unknown]
  - Madarosis [Unknown]
  - Feeling cold [Unknown]
  - Dry mouth [Recovering/Resolving]
  - Pruritus [Recovering/Resolving]
  - Fatigue [Recovering/Resolving]
  - Diarrhoea [Unknown]
  - Nail disorder [Unknown]
  - Depressed mood [Recovered/Resolved]
  - Inappropriate schedule of product administration [Unknown]
  - Asthenia [Unknown]

NARRATIVE: CASE EVENT DATE: 20241201
